FAERS Safety Report 6344786-8 (Version None)
Quarter: 2009Q3

REPORT INFORMATION
  Report Type: 
  Country: None (occurrence: None)
  Receive Date: 20090904
  Receipt Date: 20090819
  Transmission Date: 20100115
  Serious: Yes (Other)
  Sender: FDA-Public Use
  Company Number: 2009S1001082

PATIENT
  Age: 50 Year
  Sex: Male

DRUGS (3)
  1. PHOSPHOSODA FLAVOR NOT SPECIFIED [Suspect]
     Indication: COLONOSCOPY
     Dosage: PO
     Route: 048
     Dates: start: 20040929, end: 20040929
  2. INSULIIN [Concomitant]
  3. NORVASC [Concomitant]

REACTIONS (3)
  - BLOOD PARATHYROID HORMONE INCREASED [None]
  - HAEMOGLOBIN DECREASED [None]
  - RENAL FAILURE CHRONIC [None]
